FAERS Safety Report 6046564-6 (Version None)
Quarter: 2009Q1

REPORT INFORMATION
  Report Type: 
  Country: None (occurrence: None)
  Receive Date: 20090122
  Receipt Date: 20090109
  Transmission Date: 20090719
  Serious: Yes (Other)
  Sender: FDA-Public Use
  Company Number: PHHY2009AR00918

PATIENT
  Age: 66 Year
  Sex: Female

DRUGS (2)
  1. EXELON [Suspect]
     Indication: AMNESIA
     Dosage: 10CM, QD
     Route: 062
     Dates: start: 20081001, end: 20081201
  2. EXELON [Suspect]
     Indication: DISTURBANCE IN ATTENTION

REACTIONS (6)
  - ANXIETY [None]
  - DRUG INTOLERANCE [None]
  - DYSKINESIA [None]
  - MUSCLE RIGIDITY [None]
  - RESTLESSNESS [None]
  - THIRST [None]
